FAERS Safety Report 9264099 (Version 3)
Quarter: 2014Q1

REPORT INFORMATION
  Report Type: Spontaneous
  Country: US (occurrence: US)
  Receive Date: 20130430
  Receipt Date: 20140110
  Transmission Date: 20141002
  Serious: Yes (Hospitalization)
  Sender: FDA-Public Use
  Company Number: US-B.I. PHARMACEUTICALS,INC./RIDGEFIELD-2013-BI-11722BP

PATIENT
  Age: 83 Year
  Sex: Male
  Weight: 77.11 kg

DRUGS (4)
  1. PRADAXA [Suspect]
     Dosage: 300 MG
     Dates: start: 201012, end: 20110519
  2. SYNTHROID [Concomitant]
     Dosage: 50 MCG
     Dates: start: 2003, end: 2011
  3. DIGITEK [Concomitant]
  4. DILTIAZEM [Concomitant]
     Dosage: 180 MG

REACTIONS (6)
  - Haematuria [Recovered/Resolved]
  - Haemorrhagic stroke [Unknown]
  - Cerebral haemorrhage [Unknown]
  - Gastrointestinal haemorrhage [Unknown]
  - Haemorrhage [Recovered/Resolved]
  - International normalised ratio increased [Recovered/Resolved]
